FAERS Safety Report 9632900 (Version 1)
Quarter: 2013Q4

REPORT INFORMATION
  Report Type: Report from Study
  Country: CO (occurrence: CO)
  Receive Date: 20131018
  Receipt Date: 20131018
  Transmission Date: 20140711
  Serious: Yes (Other)
  Sender: FDA-Public Use
  Company Number: CO-US-EMD SERONO, INC.-7244039

PATIENT
  Sex: Female
  Weight: 30 kg

DRUGS (2)
  1. SAIZEN [Suspect]
     Indication: BODY HEIGHT BELOW NORMAL
     Route: 058
     Dates: start: 20120630, end: 20130828
  2. LEUPROLIDE ACETATE [Suspect]
     Indication: DELAYED PUBERTY
     Dosage: 11.25 (UNIT UNSPECIFIED)
     Dates: start: 20121020

REACTIONS (1)
  - Deformity [Unknown]
